FAERS Safety Report 15579990 (Version 2)
Quarter: 2018Q4

REPORT INFORMATION
  Report Type: Spontaneous
  Country: US (occurrence: US)
  Receive Date: 20181102
  Receipt Date: 20181116
  Transmission Date: 20190205
  Serious: Yes (Hospitalization)
  Sender: FDA-Public Use
  Company Number: US-VIFOR (INTERNATIONAL) INC.-VIT-2018-10662

PATIENT
  Age: 49 Year
  Sex: Male
  Weight: 104 kg

DRUGS (15)
  1. FISH OIL CONCENTRATE [Concomitant]
     Active Substance: FISH OIL
  2. IMODIUM A-D [Concomitant]
     Active Substance: LOPERAMIDE HYDROCHLORIDE
  3. LASIX [Concomitant]
     Active Substance: FUROSEMIDE
  4. BENADRYL ALLERGY [Concomitant]
     Active Substance: DIPHENHYDRAMINE HYDROCHLORIDE
  5. PHOSLO [Concomitant]
     Active Substance: CALCIUM ACETATE
  6. VELTASSA [Suspect]
     Active Substance: PATIROMER
     Indication: HYPERKALAEMIA
     Route: 048
     Dates: start: 20170503
  7. AMLODIPINE BESYLATE. [Concomitant]
     Active Substance: AMLODIPINE BESYLATE
  8. RENVELA [Concomitant]
     Active Substance: SEVELAMER CARBONATE
  9. NOVOLIN 70/30 RELION [Concomitant]
  10. ASPIRIN ADULT LOW DOSE [Concomitant]
     Active Substance: ASPIRIN
     Dosage: ADULT LOW DOSE
  11. AMBIEN [Concomitant]
     Active Substance: ZOLPIDEM TARTRATE
  12. CRESTOR [Concomitant]
     Active Substance: ROSUVASTATIN CALCIUM
  13. NEURONTIN [Concomitant]
     Active Substance: GABAPENTIN
  14. NORCO [Concomitant]
     Active Substance: ACETAMINOPHEN\HYDROCODONE BITARTRATE
  15. SENSIPAR [Concomitant]
     Active Substance: CINACALCET HYDROCHLORIDE

REACTIONS (3)
  - Blister [Unknown]
  - Finger amputation [Unknown]
  - Skin infection [Unknown]

NARRATIVE: CASE EVENT DATE: 20181019
